FAERS Safety Report 15759929 (Version 1)
Quarter: 2018Q4

REPORT INFORMATION
  Report Type: Other
  Country: ES (occurrence: ES)
  Receive Date: 20181226
  Receipt Date: 20181226
  Transmission Date: 20190205
  Serious: Yes (Hospitalization, Other)
  Sender: FDA-Public Use
  Company Number: ES-APOTEX-2018AP027941

PATIENT
  Age: 58 Year
  Sex: Female

DRUGS (8)
  1. FLUOXETINE [Concomitant]
     Active Substance: FLUOXETINE HYDROCHLORIDE
     Indication: DEPRESSION
     Dosage: 20 MG, QD(ONCE A DAY)(20 MILLIGRAM DAILY; FOR OVER 3 YEARS)
     Route: 065
  2. PREGABALIN. [Suspect]
     Active Substance: PREGABALIN
     Indication: PAIN
     Dosage: 75 MG, (0.5 DAY)(150 MILLIGRAM DAILY; FOR OVER 3 YEARS)
     Route: 065
  3. METFORMIN [Suspect]
     Active Substance: METFORMIN HYDROCHLORIDE
     Indication: TYPE 2 DIABETES MELLITUS
     Dosage: 850 MG, UNK(0.5 DAY)(1700 MILLIGRAM DAILY; FOR OVER 3 YEARS)
     Route: 065
  4. EZETIMIBE. [Concomitant]
     Active Substance: EZETIMIBE
     Indication: DYSLIPIDAEMIA
     Dosage: 10 MG, QD(ONCE A DAY)(10 MILLIGRAM DAILY; FOR OVER 3 YEARS)
     Route: 065
  5. IOPROMIDE. [Suspect]
     Active Substance: IOPROMIDE
     Indication: PRODUCT USED FOR UNKNOWN INDICATION
     Dosage: UNK
     Route: 042
  6. SIMVASTATIN. [Concomitant]
     Active Substance: SIMVASTATIN
     Indication: DYSLIPIDAEMIA
     Dosage: 20 MG, QD(ONCE A DAY)(20 MILLIGRAM DAILY; FOR OVER 3 YEARS)
     Route: 065
  7. SITAGLIPTIN [Concomitant]
     Active Substance: SITAGLIPTIN
     Indication: TYPE 2 DIABETES MELLITUS
     Dosage: (0.5 DAY)100 MILLIGRAM DAILY; FOR OVER 3 YEARS
     Route: 065
  8. ENALAPRIL [Concomitant]
     Active Substance: ENALAPRIL
     Indication: CHRONIC KIDNEY DISEASE
     Dosage: 20 MG, QD(ONCE A DAY)(20 MILLIGRAM DAILY; FOR OVER 3 YEARS)
     Route: 065

REACTIONS (2)
  - Acute kidney injury [Recovered/Resolved]
  - Parkinsonism [Recovered/Resolved]
